FAERS Safety Report 23964921 (Version 1)
Quarter: 2024Q2

REPORT INFORMATION
  Report Type: Report from Study
  Country: US (occurrence: US)
  Receive Date: 20240612
  Receipt Date: 20240612
  Transmission Date: 20240715
  Serious: Yes (Hospitalization)
  Sender: FDA-Public Use
  Company Number: US-BoehringerIngelheim-2024-BI-019531

PATIENT
  Age: 82 Year
  Sex: Female

DRUGS (2)
  1. OFEV [Suspect]
     Active Substance: NINTEDANIB
     Indication: Idiopathic pulmonary fibrosis
     Route: 048
     Dates: start: 20240321
  2. DILTIAZEM [Concomitant]
     Active Substance: DILTIAZEM
     Indication: Product used for unknown indication

REACTIONS (12)
  - Lung disorder [Unknown]
  - Haematochezia [Unknown]
  - Fatigue [Unknown]
  - Poor quality sleep [Unknown]
  - Infection [Unknown]
  - Sinus disorder [Unknown]
  - Asthenia [Unknown]
  - Insomnia [Unknown]
  - Haemoglobin decreased [Unknown]
  - Constipation [Unknown]
  - Surgery [Unknown]
  - Post procedural complication [Unknown]

NARRATIVE: CASE EVENT DATE: 20240301
